FAERS Safety Report 24578790 (Version 2)
Quarter: 2024Q4

REPORT INFORMATION
  Report Type: Spontaneous
  Country: JP (occurrence: JP)
  Receive Date: 20241105
  Receipt Date: 20241115
  Transmission Date: 20250115
  Serious: Yes (Other)
  Sender: TAKEDA
  Company Number: JP-TAKEDA-2022TJP067453

PATIENT
  Age: 2 Decade
  Sex: Female

DRUGS (4)
  1. TRINTELLIX [Suspect]
     Active Substance: VORTIOXETINE HYDROBROMIDE
     Indication: Major depression
     Dosage: 10 MILLIGRAM
  2. TRINTELLIX [Suspect]
     Active Substance: VORTIOXETINE HYDROBROMIDE
     Dosage: 20 MILLIGRAM, QD
  3. TRINTELLIX [Suspect]
     Active Substance: VORTIOXETINE HYDROBROMIDE
     Dosage: 10 MILLIGRAM
  4. LEMBOREXANT [Concomitant]
     Active Substance: LEMBOREXANT
     Dosage: 7.5 MILLIGRAM

REACTIONS (10)
  - Mental impairment [Recovered/Resolved]
  - Emotional poverty [Recovered/Resolved]
  - Middle insomnia [Recovered/Resolved]
  - Terminal insomnia [Recovered/Resolved]
  - Weight decreased [Recovered/Resolved]
  - Hypersomnia [Recovered/Resolved]
  - Coronavirus infection [Recovered/Resolved]
  - Initial insomnia [Recovered/Resolved]
  - Product administered to patient of inappropriate age [Unknown]
  - Off label use [Unknown]

NARRATIVE: CASE EVENT DATE: 20230101
